FAERS Safety Report 18364747 (Version 1)
Quarter: 2020Q3

REPORT INFORMATION
  Report Type: Spontaneous
  Country: US (occurrence: US)
  Receive Date: 20200928
  Receipt Date: 20200928
  Transmission Date: 20201103
  Serious: Yes (Death)
  Sender: FDA-Public Use
  Company Number: None

PATIENT
  Age: 8 Decade
  Sex: Male

DRUGS (3)
  1. AZITHROMYCIN ANHYDROUS. [Suspect]
     Active Substance: AZITHROMYCIN ANHYDROUS
     Indication: COVID-19
     Dates: start: 2020
  2. HYDROXYCHLOROQUINE [Suspect]
     Active Substance: HYDROXYCHLOROQUINE
     Indication: COVID-19
     Dates: start: 2020
  3. CEFTRIAXONE. [Suspect]
     Active Substance: CEFTRIAXONE
     Indication: COVID-19 PNEUMONIA
     Dates: start: 2020

REACTIONS (12)
  - Product use issue [None]
  - Septic shock [None]
  - Coma [None]
  - Product use in unapproved indication [None]
  - Hypernatraemia [None]
  - Brain death [None]
  - Hyponatraemia [None]
  - Brain oedema [None]
  - Cerebral haemorrhage [None]
  - Brain stem haemorrhage [None]
  - Brain injury [None]
  - Acute kidney injury [None]
